FAERS Safety Report 7443426-4 (Version None)
Quarter: 2011Q2

REPORT INFORMATION
  Report Type: 
  Country: None (occurrence: None)
  Receive Date: 20110428
  Receipt Date: 20110420
  Transmission Date: 20111010
  Serious: Yes (Other)
  Sender: FDA-Public Use
  Company Number: FR-EISAI INC-E3810-04641-SPO-FR

PATIENT
  Sex: Female

DRUGS (3)
  1. PROPOFAN [Suspect]
     Indication: PAIN
     Route: 048
     Dates: start: 20110225, end: 20110228
  2. CELBREX [Suspect]
     Indication: SCIATICA
     Route: 048
     Dates: start: 20110225, end: 20110228
  3. PARIET (RABEPRAZOLE) [Suspect]
     Route: 048
     Dates: start: 20110225, end: 20110228

REACTIONS (4)
  - CYSTITIS [None]
  - TRANSAMINASES INCREASED [None]
  - GAMMA-GLUTAMYLTRANSFERASE INCREASED [None]
  - ABDOMINAL PAIN UPPER [None]
